FAERS Safety Report 5332224-3 (Version None)
Quarter: 2007Q2

REPORT INFORMATION
  Report Type: 
  Country: None (occurrence: None)
  Receive Date: 20070523
  Receipt Date: 20070522
  Transmission Date: 20071010
  Serious: Yes (Hospitalization)
  Sender: FDA-Public Use
  Company Number: ID-BRISTOL-MYERS SQUIBB COMPANY-13710116

PATIENT
  Age: 25 Year
  Sex: Male

DRUGS (2)
  1. LOPINAVIR + RITONAVIR [Suspect]
     Route: 048
     Dates: start: 20060531
  2. TRUVADA [Suspect]
     Route: 048
     Dates: start: 20060531

REACTIONS (11)
  - BACK PAIN [None]
  - BLOOD GLUCOSE INCREASED [None]
  - CEREBRAL DISORDER [None]
  - DIARRHOEA [None]
  - HEADACHE [None]
  - IMMUNE RECONSTITUTION SYNDROME [None]
  - INFECTION [None]
  - PYREXIA [None]
  - VASCULITIS [None]
  - VERTIGO [None]
  - VOMITING [None]
